FAERS Safety Report 12686407 (Version 2)
Quarter: 2016Q4

REPORT INFORMATION
  Report Type: Spontaneous
  Country: US (occurrence: US)
  Receive Date: 20160825
  Receipt Date: 20161028
  Transmission Date: 20170207
  Serious: Yes (Other)
  Sender: FDA-Public Use
  Company Number: US-ELI_LILLY_AND_COMPANY-US201608011079

PATIENT
  Sex: Male
  Weight: 55.33 kg

DRUGS (1)
  1. CYRAMZA [Suspect]
     Active Substance: RAMUCIRUMAB
     Indication: OESOPHAGEAL ADENOCARCINOMA
     Dosage: 590 MG, EVERY THREE WEEKS
     Route: 042
     Dates: start: 20160623, end: 20160822

REACTIONS (1)
  - Haemoptysis [Recovered/Resolved]
